FAERS Safety Report 5068521-9 (Version None)
Quarter: 2006Q3

REPORT INFORMATION
  Report Type: 
  Country: None (occurrence: None)
  Receive Date: 20060802
  Receipt Date: 20051107
  Transmission Date: 20061208
  Serious: No
  Sender: FDA-Public Use
  Company Number: US-BRISTOL-MYERS SQUIBB COMPANY-13170477

PATIENT
  Age: 64 Year
  Sex: Male
  Weight: 106 kg

DRUGS (3)
  1. COUMADIN [Suspect]
     Indication: PULMONARY EMBOLISM
     Dosage: 5 MG THREE TIMES PER WEEK AND 2.5 MG FOUR TIMES PER WEEK
     Dates: start: 20041201
  2. LISINOPRIL [Concomitant]
  3. VYTORIN [Concomitant]

REACTIONS (2)
  - NIPPLE PAIN [None]
  - NIPPLE SWELLING [None]
